FAERS Safety Report 4972519-6 (Version None)
Quarter: 2006Q1

REPORT INFORMATION
  Report Type: 
  Country: None (occurrence: None)
  Receive Date: 20060216
  Receipt Date: 20051228
  Transmission Date: 20060701
  Serious: No
  Sender: FDA-Public Use
  Company Number: TPA2005A01277

PATIENT
  Age: 52 Year
  Sex: Male
  Weight: 113.3993 kg

DRUGS (5)
  1. ROZEREM [Suspect]
     Indication: INITIAL INSOMNIA
     Dosage: 8 MG, QHS, PER ORAL
     Route: 048
     Dates: start: 20051004, end: 20051012
  2. LEXAPRO [Concomitant]
  3. LORAZEPAM [Concomitant]
  4. ATENOLOL [Concomitant]
  5. DEXEDRENE (DEXAMFETAMINE) [Concomitant]

REACTIONS (5)
  - DIZZINESS [None]
  - DRUG INEFFECTIVE [None]
  - DYSSTASIA [None]
  - EUPHORIC MOOD [None]
  - SPONTANEOUS PENILE ERECTION [None]
